FAERS Safety Report 13503400 (Version 1)
Quarter: 2017Q2

REPORT INFORMATION
  Report Type: Spontaneous
  Country: FR (occurrence: FR)
  Receive Date: 20170502
  Receipt Date: 20170502
  Transmission Date: 20170830
  Serious: Yes (Other)
  Sender: FDA-Public Use
  Company Number: FR-PFIZER INC-2017182313

PATIENT
  Age: 7 Year
  Sex: Female
  Weight: 22 kg

DRUGS (5)
  1. ALDACTONE [Suspect]
     Active Substance: SPIRONOLACTONE
     Indication: ASCITES
     Dosage: 50 MG, 2X/DAY
     Route: 048
     Dates: start: 20170306
  2. URSOFALK [Concomitant]
     Active Substance: URSODIOL
     Indication: CHOLESTASIS
     Dosage: 5 ML, 2X/DAY
  3. DIFFU K [Concomitant]
     Active Substance: POTASSIUM CHLORIDE
     Indication: DIURETIC THERAPY
  4. VITAMIN K [Concomitant]
     Active Substance: PHYTONADIONE
     Indication: HEPATIC FAILURE
     Dosage: 10 MG, ONCE WEEKLY
  5. SPECIAFOLDINE [Concomitant]
     Active Substance: FOLIC ACID
     Indication: HYPOVITAMINOSIS
     Dosage: 5 MG, 1X/DAY
     Route: 048

REACTIONS (3)
  - Glycosuria [Recovered/Resolved]
  - Proteinuria [Recovered/Resolved]
  - Hyperglycaemia [Recovered/Resolved]

NARRATIVE: CASE EVENT DATE: 20170308
